FAERS Safety Report 7521010-1 (Version None)
Quarter: 2011Q2

REPORT INFORMATION
  Report Type: 
  Country: None (occurrence: None)
  Receive Date: 20110603
  Receipt Date: 20101115
  Transmission Date: 20111010
  Serious: No
  Sender: FDA-Public Use
  Company Number: US-BAYER-2010-002285

PATIENT
  Age: 68 Year
  Sex: Female

DRUGS (2)
  1. ULTRAVIST 150 [Suspect]
     Dosage: UNK
     Route: 042
     Dates: start: 20101027
  2. PREDNISONE [Concomitant]
     Indication: CONTRAST MEDIA ALLERGY
     Dosage: UNK
     Dates: start: 20101027

REACTIONS (1)
  - DYSPNOEA [None]
